FAERS Safety Report 17501684 (Version 1)
Quarter: 2020Q1

REPORT INFORMATION
  Report Type: Spontaneous
  Country: US (occurrence: US)
  Receive Date: 20200224
  Receipt Date: 20200224
  Transmission Date: 20200409
  Serious: Yes (Hospitalization, Other)
  Sender: FDA-Public Use
  Company Number: None

PATIENT
  Age: 59 Year
  Sex: Male
  Weight: 88 kg

DRUGS (1)
  1. ERTAPENEM (ERTAPENEM 1GM/VIL INJ) [Suspect]
     Active Substance: ERTAPENEM
     Indication: OSTEOMYELITIS
     Dosage: ?          OTHER STRENGTH:1 GM/VIL;?
     Route: 042
     Dates: start: 20191015, end: 20191101

REACTIONS (5)
  - Hallucination, visual [None]
  - Neurotoxicity [None]
  - Confusional state [None]
  - Agitation [None]
  - Mental status changes [None]

NARRATIVE: CASE EVENT DATE: 20191030
